FAERS Safety Report 6302096-9 (Version None)
Quarter: 2009Q3

REPORT INFORMATION
  Report Type: 
  Country: None (occurrence: None)
  Receive Date: 20090807
  Receipt Date: 20090727
  Transmission Date: 20100115
  Serious: Yes (Hospitalization)
  Sender: FDA-Public Use
  Company Number: ZA-MEDIMMUNE-MEDI-0008724

PATIENT
  Sex: Male
  Weight: 1.02 kg

DRUGS (1)
  1. SYNAGIS [Suspect]
     Indication: PROPHYLAXIS
     Route: 030

REACTIONS (3)
  - DECREASED APPETITE [None]
  - PALLOR [None]
  - RESPIRATORY DISORDER [None]
